FAERS Safety Report 10387004 (Version 1)
Quarter: 2014Q1

REPORT INFORMATION
  Report Type: Spontaneous
  Country: US (occurrence: None)
  Receive Date: 20140306
  Receipt Date: 20140306
  Transmission Date: 20141002
  Serious: Yes (Hospitalization)
  Sender: FDA-Public Use
  Company Number: 163-21880-13093765

PATIENT
  Age: 64 Year
  Sex: Female

DRUGS (25)
  1. REVLIMID [Suspect]
     Indication: PLASMA CELL MYELOMA
     Route: 048
     Dates: start: 20130904
  2. PHENERGAN (PROMETHAZINE HYDROCHLORIDE) [Concomitant]
  3. DEXAMETHASONE [Concomitant]
  4. ZOFRAN (ONDANSETRON HYDROCHLORIDE) [Concomitant]
  5. MORPHINE SULFATE [Concomitant]
  6. VALIUM (DIAZEPAM) [Concomitant]
  7. LISINOPRIL [Concomitant]
  8. SIMVASTATIN [Concomitant]
  9. VITAMIN D (ERGOCALCIFEROL) [Concomitant]
  10. CALCIUM [Concomitant]
  11. CRANBERRY (VACCINIUM OXYCOCCUS FRUIT EXTRACT) [Concomitant]
  12. DOCUSATE [Concomitant]
  13. TYLENOL (PARACETAMOL) [Concomitant]
  14. PEPCID (FAMOTIDINE) [Concomitant]
  15. MILK OF MAGNESIUM (MAGNESIUM HYDROXIDE) [Concomitant]
  16. ASPIRIN (ACETYLSALICYLIC ACID) [Concomitant]
  17. GABAPENTIN [Concomitant]
  18. MENTHOL ZINC OXIDE (GOLD BOND) [Concomitant]
  19. PANTOPRAZOLE [Concomitant]
  20. FENTANYL [Concomitant]
  21. CYCLOBENZAPRINE [Concomitant]
  22. METOCLOPRAMIDE [Concomitant]
  23. LORAZEPAM [Concomitant]
  24. HIPREX (METHENAMINE HIPPURATE) [Concomitant]
  25. VAGIFEM (ESTRADIOL) [Concomitant]

REACTIONS (4)
  - Escherichia urinary tract infection [None]
  - Mental status changes [None]
  - Urinary tract infection enterococcal [None]
  - Nausea [None]
